FAERS Safety Report 9993373 (Version 1)
Quarter: 2014Q1

REPORT INFORMATION
  Report Type: Spontaneous
  Country: US (occurrence: US)
  Receive Date: 20140310
  Receipt Date: 20140310
  Transmission Date: 20141002
  Serious: Yes (Other)
  Sender: FDA-Public Use
  Company Number: CHPA2014US003538

PATIENT
  Age: 49 Year
  Sex: Female

DRUGS (1)
  1. THERAFLU NIGHTTIME SEVERE COLD WARMING SYRUP [Suspect]
     Indication: NASOPHARYNGITIS
     Route: 048

REACTIONS (2)
  - Bronchitis [Unknown]
  - Expired drug administered [Unknown]
